FAERS Safety Report 9127783 (Version 1)
Quarter: 2013Q1

REPORT INFORMATION
  Report Type: Spontaneous
  Country: US (occurrence: US)
  Receive Date: 20130228
  Receipt Date: 20130228
  Transmission Date: 20140127
  Serious: No
  Sender: FDA-Public Use
  Company Number: US-GLAXOSMITHKLINE-A0999269A

PATIENT
  Age: 42 Year
  Sex: Female

DRUGS (18)
  1. LAMICTAL [Suspect]
     Indication: BIPOLAR DISORDER
     Dosage: 100MG TWICE PER DAY
     Route: 048
     Dates: start: 20121008, end: 20121029
  2. LISINOPRIL + HYDROCHLOROTHIAZIDE [Concomitant]
  3. ESTRADIOL [Concomitant]
  4. VYVANSE [Concomitant]
  5. RANITIDINE HCL [Concomitant]
  6. TRAMADOL HCL [Concomitant]
  7. METOCLOPRAMIDE [Concomitant]
  8. TIZANIDINE [Concomitant]
  9. LORAZEPAM [Concomitant]
  10. DIAZEPAM [Concomitant]
  11. CLONIDINE [Concomitant]
  12. MELOXICAM [Concomitant]
  13. MELATONIN [Concomitant]
  14. VENTOLIN HFA [Concomitant]
  15. QVAR [Concomitant]
  16. IPRATROPIUM BROMIDE (NEB) [Concomitant]
  17. ALBUTEROL SULFATE NEBULIZER [Concomitant]
  18. CYMBALTA [Concomitant]

REACTIONS (4)
  - Hypoaesthesia [Recovering/Resolving]
  - Oedema mouth [Recovering/Resolving]
  - Local swelling [Recovering/Resolving]
  - Rash [Recovering/Resolving]
